FAERS Safety Report 22959014 (Version 5)
Quarter: 2025Q3

REPORT INFORMATION
  Report Type: Report from Study
  Country: BR (occurrence: BR)
  Receive Date: 20230919
  Receipt Date: 20250807
  Transmission Date: 20251021
  Serious: Yes (Hospitalization, Other)
  Sender: TAKEDA
  Company Number: BR-TAKEDA-2023TUS090485

PATIENT
  Age: 23 Year
  Sex: Male
  Weight: 67 kg

DRUGS (2)
  1. VEDOLIZUMAB [Suspect]
     Active Substance: VEDOLIZUMAB
     Indication: Colitis ulcerative
  2. VEDOLIZUMAB [Suspect]
     Active Substance: VEDOLIZUMAB
     Dosage: 300 MILLIGRAM, Q4WEEKS

REACTIONS (15)
  - Ligament rupture [Recovered/Resolved]
  - Intestinal obstruction [Recovering/Resolving]
  - Colitis ulcerative [Recovering/Resolving]
  - Large intestinal stenosis [Unknown]
  - Accident [Recovered/Resolved]
  - Ligament sprain [Recovered/Resolved]
  - Product availability issue [Unknown]
  - Decreased immune responsiveness [Unknown]
  - Gastrointestinal motility disorder [Recovering/Resolving]
  - Drug ineffective [Unknown]
  - Impaired quality of life [Unknown]
  - Palpitations [Unknown]
  - Abdominal pain [Unknown]
  - Sinusitis [Unknown]
  - Influenza [Unknown]

NARRATIVE: CASE EVENT DATE: 20230610
